FAERS Safety Report 7289642-6 (Version None)
Quarter: 2011Q1

REPORT INFORMATION
  Report Type: 
  Country: None (occurrence: None)
  Receive Date: 20110214
  Receipt Date: 20110202
  Transmission Date: 20110831
  Serious: Yes (Hospitalization)
  Sender: FDA-Public Use
  Company Number: US-BIOGENIDEC-2011BI004735

PATIENT
  Age: 27 Year
  Sex: Female

DRUGS (1)
  1. TYSABRI [Suspect]
     Indication: MULTIPLE SCLEROSIS
     Route: 042
     Dates: start: 20100728

REACTIONS (6)
  - BALANCE DISORDER [None]
  - DIPLOPIA [None]
  - ALOPECIA [None]
  - BREAST TENDERNESS [None]
  - HEMIPARESIS [None]
  - BREAST DISCHARGE [None]
